FAERS Safety Report 26042213 (Version 1)
Quarter: 2025Q4

REPORT INFORMATION
  Report Type: Spontaneous
  Country: US (occurrence: None)
  Receive Date: 20251113
  Receipt Date: 20251113
  Transmission Date: 20260117
  Serious: Yes (Disabling)
  Sender: FDA-CTU
  Company Number: None

PATIENT
  Age: 63 Year
  Sex: Female
  Weight: 123.75 kg

DRUGS (4)
  1. PAXLOVID [Suspect]
     Active Substance: NIRMATRELVIR\RITONAVIR
     Indication: COVID-19
     Dates: start: 20251103, end: 20251108
  2. HBP medication [Concomitant]
  3. NEXIUM [Concomitant]
     Active Substance: ESOMEPRAZOLE MAGNESIUM
  4. VERAMYST [Concomitant]
     Active Substance: FLUTICASONE FUROATE

REACTIONS (3)
  - COVID-19 [None]
  - Heart rate increased [None]
  - Oxygen saturation abnormal [None]

NARRATIVE: CASE EVENT DATE: 20251112
